FAERS Safety Report 22209728 (Version 3)
Quarter: 2024Q4

REPORT INFORMATION
  Report Type: Report from Study
  Country: CA (occurrence: CA)
  Receive Date: 20230414
  Receipt Date: 20241224
  Transmission Date: 20250114
  Serious: Yes (Hospitalization)
  Sender: NOVARTIS
  Company Number: CA-002147023-NVSC2023CA081969

PATIENT
  Age: 53 Year
  Sex: Female
  Weight: 87 kg

DRUGS (1)
  1. UNSPECIFIED INGREDIENT [Suspect]
     Active Substance: UNSPECIFIED INGREDIENT
     Indication: Product used for unknown indication
     Dosage: UNK
     Route: 065

REACTIONS (2)
  - Mastitis [Not Recovered/Not Resolved]
  - Breast abscess [Not Recovered/Not Resolved]

NARRATIVE: CASE EVENT DATE: 20221031
